FAERS Safety Report 5266778-2 (Version None)
Quarter: 2007Q1

REPORT INFORMATION
  Report Type: 
  Country: None (occurrence: None)
  Receive Date: 20070312
  Receipt Date: 20070301
  Transmission Date: 20070707
  Serious: Yes (Hospitalization)
  Sender: FDA-Public Use
  Company Number: 237487

PATIENT
  Sex: Female
  Weight: 56 kg

DRUGS (11)
  1. AVASTIN [Suspect]
     Indication: NON-SMALL CELL LUNG CANCER
     Dosage: 840 MG, Q3W, INTRAVENOUS
     Route: 042
     Dates: start: 20070117
  2. ALIMTA [Suspect]
     Indication: NON-SMALL CELL LUNG CANCER
     Dosage: 500 MG/M2, INTRAVENOUS
     Route: 042
     Dates: start: 20070117
  3. ASPIRIN [Concomitant]
  4. BENADRYL [Concomitant]
  5. DEXAMETHASONE TAB [Concomitant]
  6. FENTANYL CITRATE [Concomitant]
  7. FOLIC ACID [Concomitant]
  8. GRANISETRON (GRANISETRON HYDROCHLORIDE) [Concomitant]
  9. PROMETHAZINE HCL [Concomitant]
  10. PROCHLORPERAZINE MALEATE [Concomitant]
  11. VITAMIN B12 [Concomitant]

REACTIONS (4)
  - ARRHYTHMIA SUPRAVENTRICULAR [None]
  - HYPOTENSION [None]
  - NODAL ARRHYTHMIA [None]
  - SUPRAVENTRICULAR TACHYCARDIA [None]
